FAERS Safety Report 4677209-5 (Version None)
Quarter: 2005Q2

REPORT INFORMATION
  Report Type: 
  Country: None (occurrence: None)
  Receive Date: 20050526
  Receipt Date: 20050526
  Transmission Date: 20051028
  Serious: Yes (Other)
  Sender: FDA-Public Use
  Company Number: None

PATIENT
  Sex: Female

DRUGS (4)
  1. TRAMADOL 50 MG [Suspect]
     Indication: SCOLIOSIS
     Dosage: ONE PO TID
     Route: 048
     Dates: start: 20041101
  2. TRAMADOL 50 MG [Suspect]
     Indication: SPINAL COLUMN STENOSIS
     Dosage: ONE PO TID
     Route: 048
     Dates: start: 20041101
  3. TRAMADOL 50 MG [Suspect]
     Indication: SCOLIOSIS
     Dosage: ONE PO TID
     Route: 048
     Dates: start: 20050507
  4. TRAMADOL 50 MG [Suspect]
     Indication: SPINAL COLUMN STENOSIS
     Dosage: ONE PO TID
     Route: 048
     Dates: start: 20050507

REACTIONS (2)
  - MOBILITY DECREASED [None]
  - NAUSEA [None]
